FAERS Safety Report 20510873 (Version 2)
Quarter: 2022Q1

REPORT INFORMATION
  Report Type: Spontaneous
  Country: US (occurrence: US)
  Receive Date: 20220224
  Receipt Date: 20220314
  Transmission Date: 20220424
  Serious: Yes (Life-Threatening, Hospitalization)
  Sender: FDA-Public Use
  Company Number: US-TEVA-2022-US-2009228

PATIENT
  Age: 30 Year
  Sex: Male

DRUGS (4)
  1. LOPERAMIDE [Suspect]
     Active Substance: LOPERAMIDE
     Indication: Drug abuse
     Dosage: 20 MILLIGRAM DAILY; INGESTED FOR SEVERAL DAYS
     Route: 048
  2. LOPERAMIDE [Suspect]
     Active Substance: LOPERAMIDE
     Dosage: 40 MG INGESTED ON THE DAY OF PRESENTATION
     Route: 048
  3. FENTANYL [Suspect]
     Active Substance: FENTANYL
     Indication: Drug abuse
     Route: 065
  4. BUPRENORPHINE [Suspect]
     Active Substance: BUPRENORPHINE
     Indication: Drug abuse
     Route: 065

REACTIONS (12)
  - Long QT syndrome [Recovering/Resolving]
  - Congestive cardiomyopathy [Recovering/Resolving]
  - Syncope [Recovered/Resolved]
  - Dizziness [Recovered/Resolved]
  - Hyperhidrosis [Recovered/Resolved]
  - Bundle branch block left [Recovering/Resolving]
  - Electrocardiogram T wave alternans [Recovering/Resolving]
  - Renal impairment [Recovered/Resolved]
  - Ventricular tachycardia [Recovering/Resolving]
  - Torsade de pointes [Recovering/Resolving]
  - Overdose [Unknown]
  - Drug abuse [Unknown]
